FAERS Safety Report 23140324 (Version 1)
Quarter: 2023Q4

REPORT INFORMATION
  Report Type: Spontaneous
  Country: BR (occurrence: BR)
  Receive Date: 20231102
  Receipt Date: 20231102
  Transmission Date: 20240109
  Serious: Yes (Other)
  Sender: FDA-Public Use
  Company Number: BR-002147023-NVSC2023BR010570

PATIENT
  Age: 62 Year
  Sex: Female
  Weight: 70 kg

DRUGS (10)
  1. ATORVASTATIN [Suspect]
     Active Substance: ATORVASTATIN
     Indication: Blood cholesterol increased
     Dosage: 1 DOSAGE FORM, QD
     Route: 048
  2. ATORVASTATIN [Suspect]
     Active Substance: ATORVASTATIN
     Indication: Blood triglycerides increased
  3. RYDAPT [Suspect]
     Active Substance: MIDOSTAURIN
     Dosage: 4 DOSAGE FORM, BID (START DATE: 5 MONTHS AGO)
     Route: 048
  4. RYDAPT [Suspect]
     Active Substance: MIDOSTAURIN
     Dosage: 8 DF, BID (START DATE: 5 MONTHS AGO
     Route: 048
  5. RYDAPT [Suspect]
     Active Substance: MIDOSTAURIN
     Indication: Mastocytosis
     Dosage: 25 MG, QD (4 CAPSULES PER DAY) (PATIENT USED 4 CAPSULES OF 25MG IN THE MORNING AND 4 CAPSULES OF 25M
     Route: 065
  6. RYDAPT [Suspect]
     Active Substance: MIDOSTAURIN
     Indication: Systemic mastocytosis
     Dosage: 25 MG, Q12H (2 CAPSULES PER DAY)
     Route: 065
  7. RYDAPT [Suspect]
     Active Substance: MIDOSTAURIN
     Dosage: UNK
     Route: 065
  8. CHOLECALCIFEROL [Concomitant]
     Active Substance: CHOLECALCIFEROL
     Indication: Blood cholesterol increased
     Dosage: 50 DF, QW(START DATE: 3 MONTHS AGO AND STOP DATE: AFTER 1 MONTH)
     Route: 048
  9. IMATINIB [Concomitant]
     Active Substance: IMATINIB
     Indication: Systemic mastocytosis
     Dosage: 7 DF, QW (AFTER USING 5 DROPS IN 1ST WEEK
     Route: 065
  10. INTERFERON [Concomitant]
     Active Substance: INTERFERON
     Indication: Systemic mastocytosis
     Dosage: UNK  (3 INJECTIONS/ 2 INJECTIONS)
     Route: 065

REACTIONS (18)
  - Hypoaesthesia [Recovering/Resolving]
  - Weight increased [Not Recovered/Not Resolved]
  - Tryptase decreased [Not Recovered/Not Resolved]
  - Blood triglycerides increased [Recovering/Resolving]
  - Fall [Recovering/Resolving]
  - Ligament sprain [Recovering/Resolving]
  - Joint swelling [Recovering/Resolving]
  - Abdominal pain [Recovering/Resolving]
  - Tinnitus [Recovering/Resolving]
  - Abdominal distension [Recovering/Resolving]
  - Malaise [Recovered/Resolved]
  - Dyspepsia [Recovering/Resolving]
  - Headache [Recovering/Resolving]
  - Decreased appetite [Recovering/Resolving]
  - Pain [Unknown]
  - Insomnia [Not Recovered/Not Resolved]
  - Head discomfort [Recovering/Resolving]
  - Aggression [Recovering/Resolving]

NARRATIVE: CASE EVENT DATE: 20230407
